FAERS Safety Report 9376253 (Version 1)
Quarter: 2013Q3

REPORT INFORMATION
  Report Type: Spontaneous
  Country: GB (occurrence: GB)
  Receive Date: 20130701
  Receipt Date: 20130701
  Transmission Date: 20140515
  Serious: Yes (Other)
  Sender: FDA-Public Use
  Company Number: GB-MERCK-1306GBR009509

PATIENT
  Sex: 0

DRUGS (1)
  1. ZOCOR [Suspect]
     Dosage: UNK
     Route: 048

REACTIONS (1)
  - Pituitary tumour benign [Unknown]
